FAERS Safety Report 7384307-4 (Version None)
Quarter: 2011Q1

REPORT INFORMATION
  Report Type: 
  Country: None (occurrence: None)
  Receive Date: 20110330
  Receipt Date: 20110325
  Transmission Date: 20110831
  Serious: Yes (Hospitalization, Other)
  Sender: FDA-Public Use
  Company Number: FR-GENZYME-CAMP-1001483

PATIENT
  Age: 61 Year
  Sex: Male

DRUGS (8)
  1. CAMPATH [Suspect]
     Indication: CHRONIC LYMPHOCYTIC LEUKAEMIA
     Dosage: 30 MG, 3X/W
     Route: 058
     Dates: start: 20110124, end: 20110207
  2. AMOXICILLINE [Suspect]
     Indication: TOXIC SKIN ERUPTION
     Dosage: UNK
     Route: 065
     Dates: start: 20110102, end: 20110101
  3. PARACETAMOL [Concomitant]
     Indication: PRODUCT USED FOR UNKNOWN INDICATION
     Dosage: GIVEN ON THE DAY OF THE INJECTIONS
     Route: 065
     Dates: start: 20110124
  4. DEXAMETHASONE [Suspect]
     Indication: CHRONIC LYMPHOCYTIC LEUKAEMIA
     Dosage: 40 MG FROM DAY 1-4 Q OTHER WEEK FOR 12 WEEKS
     Route: 065
     Dates: start: 20110124, end: 20110207
  5. BACTRIM [Suspect]
     Indication: PROPHYLAXIS
     Dosage: UNK
     Route: 065
     Dates: start: 20110124, end: 20110207
  6. NEULASTA [Concomitant]
     Indication: PRODUCT USED FOR UNKNOWN INDICATION
     Dosage: UNK
     Route: 065
  7. POLARAMINE [Concomitant]
     Indication: PRODUCT USED FOR UNKNOWN INDICATION
     Dosage: GIVEN ON THE DAY OF THE INJECTIONS
     Route: 065
     Dates: start: 20110124
  8. ZELITREX [Concomitant]
     Indication: PROPHYLAXIS
     Dosage: UNK
     Route: 065
     Dates: start: 20110124

REACTIONS (5)
  - RENAL FAILURE [None]
  - INJECTION SITE REACTION [None]
  - PYREXIA [None]
  - RASH [None]
  - EOSINOPHIL COUNT INCREASED [None]
